FAERS Safety Report 5832325-7 (Version None)
Quarter: 2008Q3

REPORT INFORMATION
  Report Type: 
  Country: None (occurrence: None)
  Receive Date: 20080804
  Receipt Date: 20080725
  Transmission Date: 20090109
  Serious: Yes (Hospitalization)
  Sender: FDA-Public Use
  Company Number: B0529240A

PATIENT
  Age: 68 Year
  Sex: Male
  Weight: 130 kg

DRUGS (1)
  1. ARIXTRA [Suspect]
     Dosage: 10MG PER DAY
     Route: 058
     Dates: start: 20080627, end: 20080701

REACTIONS (2)
  - POST PROCEDURAL HAEMORRHAGE [None]
  - URINARY BLADDER HAEMORRHAGE [None]
